FAERS Safety Report 15727269 (Version 2)
Quarter: 2018Q4

REPORT INFORMATION
  Report Type: Report from Study
  Country: PK (occurrence: PK)
  Receive Date: 20181217
  Receipt Date: 20181222
  Transmission Date: 20190205
  Serious: Yes (Other)
  Sender: FDA-Public Use
  Company Number: PK-ROCHE-2225075

PATIENT

DRUGS (4)
  1. ALCAINE [Concomitant]
     Active Substance: PROPARACAINE HYDROCHLORIDE
     Dosage: INSTILLED 2- 3 TIMES WITH AN INTERVAL OF 4-5 MINUTES
     Route: 047
  2. POVIDONE-IODINE. [Concomitant]
     Active Substance: POVIDONE-IODINE
     Dosage: INSTILLATION IN CONJUNCTIVAL SAC REGION FOR 2-3 MINUTES BEFORE IVB
     Route: 047
  3. BEVACIZUMAB. [Suspect]
     Active Substance: BEVACIZUMAB
     Indication: RETINAL DISORDER
     Route: 050
  4. OFLOXACIN. [Suspect]
     Active Substance: OFLOXACIN
     Indication: EYE DISORDER PROPHYLAXIS
     Route: 047

REACTIONS (2)
  - Endophthalmitis [Unknown]
  - Suspected transmission of an infectious agent via product [Unknown]
